FAERS Safety Report 8245043-5 (Version None)
Quarter: 2012Q1

REPORT INFORMATION
  Report Type: 
  Country: None (occurrence: None)
  Receive Date: 20120329
  Receipt Date: 20120322
  Transmission Date: 20120608
  Serious: Yes (Hospitalization)
  Sender: FDA-Public Use
  Company Number: US-GLAXOSMITHKLINE-A0834997A

PATIENT
  Age: 73 Year
  Sex: Male

DRUGS (1)
  1. AVANDIA [Suspect]
     Indication: DIABETES MELLITUS
     Dosage: 4MG PER DAY
     Route: 048
     Dates: start: 19990501, end: 20020401

REACTIONS (6)
  - CARDIAC FAILURE [None]
  - MYOCARDIAL INFARCTION [None]
  - PAIN [None]
  - ECONOMIC PROBLEM [None]
  - SKIN LESION [None]
  - BACK PAIN [None]
